FAERS Safety Report 7819731-6 (Version None)
Quarter: 2011Q4

REPORT INFORMATION
  Report Type: 
  Country: None (occurrence: None)
  Receive Date: 20111018
  Receipt Date: 20110427
  Transmission Date: 20120403
  Serious: No
  Sender: FDA-Public Use
  Company Number: US-ASTRAZENECA-2011SE24899

PATIENT
  Age: 54 Year
  Sex: Female

DRUGS (2)
  1. FLOVENT [Concomitant]
  2. SYMBICORT [Suspect]
     Route: 055

REACTIONS (5)
  - MIGRAINE [None]
  - ASTHMA [None]
  - ABASIA [None]
  - NAUSEA [None]
  - MALAISE [None]
